FAERS Safety Report 18146126 (Version 2)
Quarter: 2020Q3

REPORT INFORMATION
  Report Type: Spontaneous
  Country: CN (occurrence: CN)
  Receive Date: 20200813
  Receipt Date: 20200817
  Transmission Date: 20201103
  Serious: Yes (Other)
  Sender: FDA-Public Use
  Company Number: CN-PFIZER INC-2020309177

PATIENT
  Age: 45 Year
  Sex: Male
  Weight: 72.5 kg

DRUGS (1)
  1. PANTOLOC [Suspect]
     Active Substance: PANTOPRAZOLE SODIUM
     Indication: CEREBROVASCULAR DISORDER
     Dosage: 40 MILLIGRAM, QD
     Route: 041
     Dates: start: 20200302, end: 20200312

REACTIONS (5)
  - Respiratory rate increased [Unknown]
  - Infusion related reaction [Recovering/Resolving]
  - Off label use [Unknown]
  - Product use in unapproved indication [Unknown]
  - Blood pressure increased [Unknown]

NARRATIVE: CASE EVENT DATE: 20200312
